FAERS Safety Report 5519717-0 (Version None)
Quarter: 2007Q4

REPORT INFORMATION
  Report Type: 
  Country: None (occurrence: None)
  Receive Date: 20071116
  Receipt Date: 20071105
  Transmission Date: 20080405
  Serious: Yes (Disabling, Other)
  Sender: FDA-Public Use
  Company Number: ES-GENENTECH-251241

PATIENT
  Sex: Male

DRUGS (1)
  1. MABTHERA [Suspect]
     Indication: LYMPHOMA

REACTIONS (1)
  - SYNCOPE [None]
